FAERS Safety Report 13210719 (Version 1)
Quarter: 2017Q1

REPORT INFORMATION
  Report Type: Spontaneous
  Country: US (occurrence: US)
  Receive Date: 20170209
  Receipt Date: 20170209
  Transmission Date: 20170428
  Serious: Yes (Hospitalization)
  Sender: FDA-Public Use
  Company Number: None

PATIENT
  Age: 52 Year
  Sex: Female
  Weight: 65.25 kg

DRUGS (4)
  1. IMITREX [Concomitant]
     Active Substance: SUMATRIPTAN SUCCINATE
  2. OXYCODONE [Concomitant]
     Active Substance: OXYCODONE
  3. TOPIRAMATE. [Concomitant]
     Active Substance: TOPIRAMATE
  4. AMBIEN [Suspect]
     Active Substance: ZOLPIDEM TARTRATE
     Indication: INSOMNIA
     Dosage: ?          QUANTITY:1 TABLET(S);?
     Route: 048
     Dates: start: 20150904, end: 20150904

REACTIONS (5)
  - Clavicle fracture [None]
  - Road traffic accident [None]
  - Legal problem [None]
  - Somnambulism [None]
  - Humerus fracture [None]

NARRATIVE: CASE EVENT DATE: 20150904
